FAERS Safety Report 4382310-X (Version None)
Quarter: 2004Q2

REPORT INFORMATION
  Report Type: 
  Country: None (occurrence: None)
  Receive Date: 20040621
  Receipt Date: 20040621
  Transmission Date: 20050107
  Serious: Yes (Disabling, Other)
  Sender: FDA-Public Use
  Company Number: None

PATIENT
  Age: 42 Year
  Sex: Female
  Weight: 58.9676 kg

DRUGS (9)
  1. BOTOX [Suspect]
     Indication: MIGRAINE
     Dosage: INJECTION INTRAMUSCULAR
     Route: 030
     Dates: start: 20040527, end: 20040527
  2. PLAQUENIL [Concomitant]
  3. TOPAMAX [Concomitant]
  4. TEGRETOL [Concomitant]
  5. LEXAPRO [Concomitant]
  6. XANAX [Concomitant]
  7. LESCOL [Concomitant]
  8. AVINZA [Concomitant]
  9. DILAUDID [Concomitant]

REACTIONS (4)
  - DYSPHAGIA [None]
  - HEMIPARESIS [None]
  - MIGRAINE [None]
  - PAIN [None]
